FAERS Safety Report 8965891 (Version 1)
Quarter: 2012Q4

REPORT INFORMATION
  Report Type: Spontaneous
  Country: DK (occurrence: None)
  Receive Date: 20121204
  Receipt Date: 20121204
  Transmission Date: 20130627
  Serious: Yes (Hospitalization)
  Sender: FDA-Public Use
  Company Number: 2012MA013638

PATIENT
  Age: 82 Year
  Sex: Male

DRUGS (7)
  1. METFORMIN HYDROCHLORIDE EXTENDED-RELEASE [Suspect]
     Route: 048
     Dates: start: 20120101, end: 20121020
  2. GLICLAZIDE [Suspect]
     Route: 048
     Dates: start: 20120101, end: 20121020
  3. HUMALOG [Suspect]
     Route: 058
     Dates: start: 20120101, end: 20121020
  4. TRIATEC [Concomitant]
  5. CARDIOASPIRIN [Concomitant]
  6. PROCAPTAN [Concomitant]
  7. LERCANIDIPINE [Concomitant]

REACTIONS (1)
  - Hypoglycaemia [None]
